FAERS Safety Report 5267081-7 (Version None)
Quarter: 2007Q1

REPORT INFORMATION
  Report Type: 
  Country: None (occurrence: None)
  Receive Date: 20061213
  Receipt Date: 20030121
  Transmission Date: 20070707
  Serious: Yes (Death, Hospitalization)
  Sender: FDA-Public Use
  Company Number: 2003AP00266

PATIENT
  Age: 56 Year
  Sex: Female

DRUGS (5)
  1. TAMOXIFEN CITRATE [Suspect]
     Indication: BREAST CANCER
     Dosage: ADJUVANT THERAPY FOR AT LEAST TWO YEARS
  2. CYCLOPHOSPHAMIDE [Suspect]
     Indication: BREAST CANCER
     Dosage: RECEIVED 6 CYCLES
  3. METHOTREXATE [Suspect]
     Indication: BREAST CANCER
     Dosage: RECEIVED 6 CYCLES
  4. FLUOROURACIL [Suspect]
     Dosage: RECEIVED 6 CYCLES
  5. RADIATION THERAPY [Suspect]
     Indication: BREAST CANCER
     Dosage: ADJUVANT THERAPY

REACTIONS (1)
  - MYELOID LEUKAEMIA [None]
